FAERS Safety Report 4541939-6 (Version None)
Quarter: 2004Q4

REPORT INFORMATION
  Report Type: 
  Country: None (occurrence: None)
  Receive Date: 20041223
  Receipt Date: 20041013
  Transmission Date: 20050328
  Serious: No
  Sender: FDA-Public Use
  Company Number: US-JNJFOC-20041004430

PATIENT
  Age: 26 Year
  Sex: Female
  Weight: 61.2356 kg

DRUGS (2)
  1. ORTHO EVRA [Suspect]
     Indication: CONTRACEPTION
     Dosage: 1 DOSE(S) 3 IN 4 WEEK TRANSDERMAL
     Route: 062
     Dates: end: 20041009
  2. ORAL CONTRACEPTIVE NOS (NORAL CONTRACEPTIVE) TABLETS [Suspect]
     Dosage: 1 DOSE(S) 1 IN 1 DAY ORAL
     Route: 048

REACTIONS (1)
  - NAUSEA [None]
